FAERS Safety Report 9550005 (Version 1)
Quarter: 2013Q3

REPORT INFORMATION
  Report Type: Spontaneous
  Country: BR (occurrence: BR)
  Receive Date: 20130924
  Receipt Date: 20130924
  Transmission Date: 20140515
  Serious: Yes (Hospitalization)
  Sender: FDA-Public Use
  Company Number: BR-GLAXOSMITHKLINE-A1042538A

PATIENT
  Age: 5 Year
  Sex: Male
  Weight: 21 kg

DRUGS (5)
  1. FLIXOTIDE [Suspect]
     Indication: ATYPICAL PNEUMONIA
     Dosage: 1Z TWICE PER DAY
     Dates: start: 20130423
  2. AEROLIN [Concomitant]
  3. CLARITHROMYCIN [Concomitant]
  4. SINGULAIR [Concomitant]
  5. PREDNISONE [Concomitant]

REACTIONS (4)
  - Fatigue [Recovered/Resolved]
  - Rales [Recovered/Resolved]
  - Cough [Recovered/Resolved]
  - Bronchitis [Unknown]
